FAERS Safety Report 13251994 (Version 1)
Quarter: 2017Q1

REPORT INFORMATION
  Report Type: Report from Study
  Country: US (occurrence: US)
  Receive Date: 20170220
  Receipt Date: 20170220
  Transmission Date: 20170428
  Serious: Yes (Other)
  Sender: FDA-Public Use
  Company Number: US-AMGEN-USASL2017025159

PATIENT
  Age: 55 Year
  Sex: Female

DRUGS (1)
  1. REPATHA [Suspect]
     Active Substance: EVOLOCUMAB
     Indication: LOW DENSITY LIPOPROTEIN INCREASED
     Dosage: 140 MG, Q2WK
     Route: 065

REACTIONS (3)
  - Pain in extremity [Recovered/Resolved]
  - Back pain [Recovered/Resolved]
  - Kidney infection [Unknown]
